FAERS Safety Report 15968775 (Version 1)
Quarter: 2019Q1

REPORT INFORMATION
  Report Type: Spontaneous
  Country: DE (occurrence: DE)
  Receive Date: 20190215
  Receipt Date: 20190215
  Transmission Date: 20190418
  Serious: Yes (Hospitalization)
  Sender: FDA-Public Use
  Company Number: DE-BAYER-2019-027243

PATIENT
  Age: 49 Year
  Sex: Male
  Weight: 71 kg

DRUGS (2)
  1. GADOVIST [Suspect]
     Active Substance: GADOBUTROL
     Indication: NUCLEAR MAGNETIC RESONANCE IMAGING ABDOMINAL
     Dosage: 7 ML, ONCE, RIGHT ARM
     Route: 042
     Dates: start: 20181031, end: 20181031
  2. GADOVIST [Suspect]
     Active Substance: GADOBUTROL
     Indication: NUCLEAR MAGNETIC RESONANCE IMAGING ABDOMINAL
     Dosage: 7 ML, ONCE, RIGHT ARM
     Route: 042
     Dates: start: 20181031, end: 20181031

REACTIONS (16)
  - Tension headache [Not Recovered/Not Resolved]
  - Contrast media allergy [None]
  - Bone pain [None]
  - Hyperferritinaemia [Not Recovered/Not Resolved]
  - Pain of skin [Not Recovered/Not Resolved]
  - Dizziness [None]
  - Weight decreased [None]
  - Fatigue [None]
  - Dyspnoea [None]
  - Arthralgia [None]
  - Hypoaesthesia [Not Recovered/Not Resolved]
  - Paraesthesia [None]
  - Pain in extremity [None]
  - Arthralgia [Not Recovered/Not Resolved]
  - Skin discolouration [Not Recovered/Not Resolved]
  - Night sweats [None]

NARRATIVE: CASE EVENT DATE: 2018
